FAERS Safety Report 8557130-2 (Version None)
Quarter: 2012Q3

REPORT INFORMATION
  Report Type: 
  Country: None (occurrence: None)
  Receive Date: 20120801
  Receipt Date: 20120730
  Transmission Date: 20120928
  Serious: Yes (Other)
  Sender: FDA-Public Use
  Company Number: GR-ROCHE-1094546

PATIENT
  Age: 50 Year
  Sex: Male

DRUGS (1)
  1. MABTHERA [Suspect]
     Indication: HAIRY CELL LEUKAEMIA
     Dates: start: 20120729

REACTIONS (4)
  - HAEMATURIA [None]
  - PLATELET COUNT DECREASED [None]
  - HAEMOLYSIS [None]
  - THROMBOCYTOPENIA [None]
